FAERS Safety Report 7220916-0 (Version None)
Quarter: 2011Q1

REPORT INFORMATION
  Report Type: 
  Country: None (occurrence: None)
  Receive Date: 20110112
  Receipt Date: 20101123
  Transmission Date: 20110831
  Serious: No
  Sender: FDA-Public Use
  Company Number: A0894675A

PATIENT
  Age: 48 Year
  Sex: Male

DRUGS (2)
  1. INSULIN [Concomitant]
  2. JALYN [Suspect]
     Indication: BENIGN PROSTATIC HYPERPLASIA
     Dosage: 1CAP PER DAY
     Route: 048
     Dates: start: 20100920

REACTIONS (4)
  - ERECTILE DYSFUNCTION [None]
  - DRUG INEFFECTIVE [None]
  - POLLAKIURIA [None]
  - ILL-DEFINED DISORDER [None]
